FAERS Safety Report 6221617-8 (Version None)
Quarter: 2009Q2

REPORT INFORMATION
  Report Type: 
  Country: None (occurrence: None)
  Receive Date: 20090610
  Receipt Date: 20090530
  Transmission Date: 20091009
  Serious: Yes (Death)
  Sender: FDA-Public Use
  Company Number: IN-BAXTER-2009BH009463

PATIENT
  Age: 69 Year
  Sex: Male

DRUGS (2)
  1. DIANEAL [Suspect]
     Indication: PERITONEAL DIALYSIS
     Route: 033
     Dates: start: 20090507, end: 20090524
  2. DIANEAL [Suspect]
     Route: 033
     Dates: start: 20090507, end: 20090524

REACTIONS (1)
  - CARDIAC ARREST [None]
